FAERS Safety Report 26041466 (Version 2)
Quarter: 2025Q4

REPORT INFORMATION
  Report Type: Spontaneous
  Country: US (occurrence: US)
  Receive Date: 20251113
  Receipt Date: 20251114
  Transmission Date: 20260118
  Serious: Yes (Hospitalization, Other)
  Sender: Kenvue
  Company Number: US-KENVUE-20251103108

PATIENT
  Age: 5 Month
  Sex: Female

DRUGS (1)
  1. SALICYLIC ACID [Suspect]
     Active Substance: SALICYLIC ACID
     Indication: Eczema
     Dosage: USED FOR SEVERAL WEEKS
     Route: 061

REACTIONS (2)
  - Toxicity to various agents [Recovered/Resolved]
  - Product use in unapproved indication [Unknown]
